FAERS Safety Report 17081598 (Version 1)
Quarter: 2019Q4

REPORT INFORMATION
  Report Type: Spontaneous
  Country: US (occurrence: US)
  Receive Date: 20191126
  Receipt Date: 20191126
  Transmission Date: 20200122
  Serious: No
  Sender: FDA-Public Use
  Company Number: None

PATIENT
  Age: 6 Year
  Sex: Male

DRUGS (1)
  1. CLONIDINE HCL SUSPENSION [Suspect]
     Active Substance: CLONIDINE HYDROCHLORIDE
     Indication: INSOMNIA
     Route: 048

REACTIONS (2)
  - Hypersomnia [None]
  - Vomiting [None]

NARRATIVE: CASE EVENT DATE: 20191115
